FAERS Safety Report 14571538 (Version 1)
Quarter: 2018Q1

REPORT INFORMATION
  Report Type: Spontaneous
  Country: GB (occurrence: GB)
  Receive Date: 20180226
  Receipt Date: 20180226
  Transmission Date: 20180509
  Serious: Yes (Disabling)
  Sender: FDA-Public Use
  Company Number: GB-TORRENT-00016140

PATIENT
  Age: 53 Year
  Sex: Female
  Weight: 73 kg

DRUGS (9)
  1. BISOPROLOL [Concomitant]
     Active Substance: BISOPROLOL
     Indication: PALPITATIONS
     Dosage: USED FOR OVER A YEAR
  2. ATORVASTATIN [Concomitant]
     Active Substance: ATORVASTATIN
     Indication: TRANSIENT ISCHAEMIC ATTACK
  3. MELOXICAM. [Concomitant]
     Active Substance: MELOXICAM
     Indication: PRODUCT USED FOR UNKNOWN INDICATION
  4. FYBOGEL MEBEVERINE [Concomitant]
     Indication: PRODUCT USED FOR UNKNOWN INDICATION
  5. ACETYLSALICYLIC ACID [Concomitant]
     Active Substance: ASPIRIN
     Indication: PRODUCT USED FOR UNKNOWN INDICATION
     Dosage: WAS ADVISED TO STOP ASPIRIN
  6. BUTRANS [Concomitant]
     Active Substance: BUPRENORPHINE
     Indication: PRODUCT USED FOR UNKNOWN INDICATION
  7. CLOPIDOGREL [Suspect]
     Active Substance: CLOPIDOGREL BISULFATE
     Indication: TRANSIENT ISCHAEMIC ATTACK
     Route: 048
     Dates: start: 20171109, end: 20171124
  8. OMEPRAZOLE. [Concomitant]
     Active Substance: OMEPRAZOLE
     Indication: PRODUCT USED FOR UNKNOWN INDICATION
  9. ADCAL-D3 [Concomitant]
     Active Substance: CALCIUM CARBONATE\CHOLECALCIFEROL
     Indication: PRODUCT USED FOR UNKNOWN INDICATION

REACTIONS (6)
  - Tremor [Recovered/Resolved]
  - Nervousness [Recovered/Resolved]
  - Eyelid retraction [Recovered/Resolved]
  - Dyskinesia [Recovered/Resolved]
  - Balance disorder [Recovered/Resolved]
  - Palpitations [Recovered/Resolved]

NARRATIVE: CASE EVENT DATE: 20171118
